FAERS Safety Report 9976085 (Version 1)
Quarter: 2014Q1

REPORT INFORMATION
  Report Type: Spontaneous
  Country: US (occurrence: US)
  Receive Date: 20140306
  Receipt Date: 20140306
  Transmission Date: 20141002
  Serious: Yes (Other)
  Sender: FDA-Public Use
  Company Number: US-BAXTER-2014BAX009208

PATIENT
  Age: 8 Month
  Sex: Male

DRUGS (1)
  1. CEFTRIAXONE INJECTION, USP (IN DEXTROSE) [Suspect]
     Indication: PYREXIA
     Route: 065

REACTIONS (3)
  - Rash papular [Recovered/Resolved]
  - Erythema [Recovered/Resolved]
  - Acute haemorrhagic oedema of infancy [Recovered/Resolved]
